FAERS Safety Report 6368573-X (Version None)
Quarter: 2009Q3

REPORT INFORMATION
  Report Type: 
  Country: None (occurrence: None)
  Receive Date: 20090922
  Receipt Date: 20090211
  Transmission Date: 20100115
  Serious: No
  Sender: FDA-Public Use
  Company Number: US-BRISTOL-MYERS SQUIBB COMPANY-14506117

PATIENT
  Sex: Male

DRUGS (1)
  1. BUSPAR [Suspect]
     Dosage: INITIALLY RECEIVED 120MG, LATER DECREASED TO 60MG(PRESCRIBED DOSE)

REACTIONS (4)
  - DRUG ADMINISTRATION ERROR [None]
  - DRUG INEFFECTIVE [None]
  - NO ADVERSE EVENT [None]
  - OVERDOSE [None]
